FAERS Safety Report 9419241 (Version 1)
Quarter: 2013Q3

REPORT INFORMATION
  Report Type: Spontaneous
  Country: US (occurrence: US)
  Receive Date: 20130725
  Receipt Date: 20130725
  Transmission Date: 20140515
  Serious: No
  Sender: FDA-Public Use
  Company Number: US-GLAXOSMITHKLINE-A0984398A

PATIENT
  Age: 33 Year
  Sex: Male
  Weight: 72.7 kg

DRUGS (1)
  1. LAMICTAL XR [Suspect]
     Indication: PRODUCT USED FOR UNKNOWN INDICATION
     Dosage: 200MG UNKNOWN
     Route: 065
     Dates: start: 20120508

REACTIONS (2)
  - Hypersensitivity [Recovered/Resolved]
  - Arthropod bite [Recovered/Resolved]
